FAERS Safety Report 14822985 (Version 2)
Quarter: 2018Q2

REPORT INFORMATION
  Report Type: Spontaneous
  Country: IE (occurrence: IE)
  Receive Date: 20180427
  Receipt Date: 20180514
  Transmission Date: 20180711
  Serious: Yes (Life-Threatening, Hospitalization, Other)
  Sender: FDA-Public Use
  Company Number: PHHY2018IE074207

PATIENT
  Age: 22 Year
  Sex: Male
  Weight: 45 kg

DRUGS (2)
  1. JADENU [Suspect]
     Active Substance: DEFERASIROX
     Indication: IRON OVERLOAD
     Dosage: 1440 MG, QD (32 MG/KG/DAY)
     Route: 048
     Dates: start: 20161116
  2. JADENU [Suspect]
     Active Substance: DEFERASIROX
     Dosage: UNK
     Route: 065
     Dates: start: 201712, end: 20180302

REACTIONS (6)
  - Hypotension [Not Recovered/Not Resolved]
  - Malaise [Unknown]
  - Multiple organ dysfunction syndrome [Not Recovered/Not Resolved]
  - Gastrointestinal haemorrhage [Not Recovered/Not Resolved]
  - Seizure [Unknown]
  - Metabolic acidosis [Unknown]

NARRATIVE: CASE EVENT DATE: 201712
